FAERS Safety Report 5367275-6 (Version None)
Quarter: 2007Q2

REPORT INFORMATION
  Report Type: 
  Country: None (occurrence: None)
  Receive Date: 20070622
  Receipt Date: 20070612
  Transmission Date: 20071010
  Serious: Yes (Other)
  Sender: FDA-Public Use
  Company Number: DE-GILEAD-2007-0011432

PATIENT
  Sex: Male
  Weight: 65 kg

DRUGS (4)
  1. TRUVADA [Suspect]
     Dates: start: 20061009
  2. TRUVADA [Suspect]
     Dates: start: 20070217, end: 20070301
  3. SUSTIVA [Suspect]
     Dates: start: 20061009
  4. PREDNISOLONE [Concomitant]

REACTIONS (3)
  - NEPHROPATHY [None]
  - RASH [None]
  - THROMBOCYTOPENIA [None]
